FAERS Safety Report 6649151-1 (Version None)
Quarter: 2010Q1

REPORT INFORMATION
  Report Type: 
  Country: None (occurrence: None)
  Receive Date: 20100324
  Receipt Date: 20100323
  Transmission Date: 20100710
  Serious: Yes (Death)
  Sender: FDA-Public Use
  Company Number: A0844246A

PATIENT
  Age: 38 Year
  Sex: Female
  Weight: 77.3 kg

DRUGS (6)
  1. LAMICTAL CD [Suspect]
     Dosage: 100MG TWICE PER DAY
     Route: 048
     Dates: start: 20091031
  2. TRILEPTAL [Concomitant]
     Dosage: 450MG PER DAY
     Route: 048
     Dates: start: 20080101
  3. XANAX [Concomitant]
  4. METHADONE [Concomitant]
  5. SUBOXONE [Concomitant]
  6. CRACK COCAINE [Concomitant]

REACTIONS (1)
  - DEATH [None]
